FAERS Safety Report 25969268 (Version 1)
Quarter: 2025Q4

REPORT INFORMATION
  Report Type: Spontaneous
  Country: EU (occurrence: EU)
  Receive Date: 20251028
  Receipt Date: 20251028
  Transmission Date: 20260118
  Serious: Yes (Other)
  Sender: MYLAN
  Company Number: None

PATIENT
  Age: 24 Year
  Sex: Female

DRUGS (3)
  1. SERTRALINE HYDROCHLORIDE [Suspect]
     Active Substance: SERTRALINE HYDROCHLORIDE
     Indication: Depression
     Dosage: 150 MILLIGRAM, QD (0+0+3)
     Dates: start: 20160101, end: 2022
  2. SERTRALINE HYDROCHLORIDE [Suspect]
     Active Substance: SERTRALINE HYDROCHLORIDE
     Indication: Anxiety
     Dosage: 50 MILLIGRAM, QD
     Dates: start: 2022, end: 20221026
  3. MIRTAZAPINE [Concomitant]
     Active Substance: MIRTAZAPINE
     Dosage: UNK

REACTIONS (7)
  - Multiple acyl-coenzyme A dehydrogenase deficiency [Unknown]
  - Carnitine deficiency [Unknown]
  - Vitamin B12 deficiency [Unknown]
  - Hypokalaemia [Unknown]
  - Blood folate decreased [Unknown]
  - CSF test abnormal [Unknown]
  - Hepatic enzyme increased [Unknown]

NARRATIVE: CASE EVENT DATE: 20220101
